FAERS Safety Report 23354290 (Version 2)
Quarter: 2024Q1

REPORT INFORMATION
  Report Type: Spontaneous
  Country: IT (occurrence: IT)
  Receive Date: 20240101
  Receipt Date: 20240105
  Transmission Date: 20240409
  Serious: Yes (Other)
  Sender: FDA-Public Use
  Company Number: IT-MINISAL02-957173

PATIENT
  Age: 53 Year
  Sex: Female
  Weight: 60 kg

DRUGS (5)
  1. PACLITAXEL [Suspect]
     Active Substance: PACLITAXEL
     Indication: Breast cancer
     Dosage: 90 MILLIGRAM (EVERY 21 DAYS)
     Route: 042
     Dates: start: 20230926, end: 20231214
  2. PACLITAXEL [Suspect]
     Active Substance: PACLITAXEL
     Indication: Triple negative breast cancer
     Dosage: 90 MILLIGRAM (EVERY 21 DAYS)
     Route: 042
     Dates: start: 20231110
  3. CARBOPLATIN [Suspect]
     Active Substance: CARBOPLATIN
     Indication: Triple negative breast cancer
     Dosage: 90 MILLIGRAM (FOR EVERY 21 DAYS)
     Route: 042
     Dates: start: 20230926
  4. CARBOPLATIN [Suspect]
     Active Substance: CARBOPLATIN
     Indication: Breast cancer
     Dosage: 90 MILLIGRAM (FOR EVERY 21 DAYS)
     Route: 042
     Dates: start: 20231110, end: 20231110
  5. KEYTRUDA [Suspect]
     Active Substance: PEMBROLIZUMAB
     Indication: Triple negative breast cancer
     Dosage: 200 MILLIGRAM
     Route: 042
     Dates: start: 20230926

REACTIONS (1)
  - Febrile neutropenia [Recovered/Resolved]

NARRATIVE: CASE EVENT DATE: 20231124
